FAERS Safety Report 5460759-1 (Version None)
Quarter: 2007Q3

REPORT INFORMATION
  Report Type: 
  Country: None (occurrence: None)
  Receive Date: 20070918
  Receipt Date: 20070820
  Transmission Date: 20080115
  Serious: Yes (Life-Threatening, Hospitalization)
  Sender: FDA-Public Use
  Company Number: 6037541

PATIENT
  Age: 85 Year
  Sex: Male

DRUGS (6)
  1. WARFARIN SODIUM [Suspect]
     Indication: ATRIAL FIBRILLATION
     Dosage: ORAL
     Route: 048
  2. IBUPROFEN [Suspect]
     Indication: DRUG USE FOR UNKNOWN INDICATION
     Dosage: 1200 MG (400 MG, 3 IN 1 D) ORAL
     Route: 048
  3. BECONASE [Concomitant]
  4. BIMATOPROST (BIMATOPROST) [Concomitant]
  5. COMBIVENT (SALBUTAMOL, IPRATROPIUM BROMIDE) [Concomitant]
  6. MONTELUKAST SODIUM [Concomitant]

REACTIONS (2)
  - GASTROINTESTINAL HAEMORRHAGE [None]
  - GASTROINTESTINAL ULCER PERFORATION [None]
